FAERS Safety Report 12944533 (Version 1)
Quarter: 2016Q4

REPORT INFORMATION
  Report Type: Report from Study
  Country: None (occurrence: US)
  Receive Date: 20161116
  Receipt Date: 20161116
  Transmission Date: 20170207
  Serious: Yes (Other)
  Sender: FDA-Public Use
  Company Number: US-ABBVIE-16K-163-1778834-00

PATIENT
  Age: 63 Year
  Sex: Female

DRUGS (3)
  1. EDARBI [Concomitant]
     Active Substance: AZILSARTAN KAMEDOXOMIL
     Indication: HYPERTENSION
  2. HUMIRA [Suspect]
     Active Substance: ADALIMUMAB
     Route: 058
     Dates: start: 2016
  3. HUMIRA [Suspect]
     Active Substance: ADALIMUMAB
     Indication: PSORIASIS
     Route: 058
     Dates: start: 2014, end: 2016

REACTIONS (11)
  - Gait disturbance [Recovered/Resolved]
  - Oral herpes [Recovered/Resolved]
  - Device issue [Unknown]
  - Impaired healing [Recovered/Resolved]
  - Wound dehiscence [Recovered/Resolved]
  - Post procedural complication [Recovered/Resolved]
  - Incorrect dose administered [Unknown]
  - Benign neoplasm [Recovered/Resolved]
  - Immunodeficiency [Not Recovered/Not Resolved]
  - Impaired healing [Recovered/Resolved]
  - Injection site pain [Not Recovered/Not Resolved]

NARRATIVE: CASE EVENT DATE: 2014
